FAERS Safety Report 5512911-4 (Version None)
Quarter: 2007Q4

REPORT INFORMATION
  Report Type: 
  Country: None (occurrence: None)
  Receive Date: 20071112
  Receipt Date: 20071106
  Transmission Date: 20080405
  Serious: Yes (Death)
  Sender: FDA-Public Use
  Company Number: B0494360A

PATIENT
  Age: 100 Year
  Sex: Female
  Weight: 53 kg

DRUGS (1)
  1. ARIXTRA [Suspect]
     Dosage: 1.5MG PER DAY
     Route: 058

REACTIONS (5)
  - ACUTE ABDOMEN [None]
  - HAEMATEMESIS [None]
  - INTESTINAL ISCHAEMIA [None]
  - MELAENA [None]
  - RENAL FAILURE ACUTE [None]
